FAERS Safety Report 9193746 (Version 1)
Quarter: 2013Q1

REPORT INFORMATION
  Report Type: Report from Study
  Country: US (occurrence: US)
  Receive Date: 20130327
  Receipt Date: 20130327
  Transmission Date: 20140127
  Serious: Yes (Other)
  Sender: FDA-Public Use
  Company Number: US-JNJFOC-20130312381

PATIENT
  Sex: 0

DRUGS (4)
  1. SIMPONI [Suspect]
     Indication: PRODUCT USED FOR UNKNOWN INDICATION
     Route: 065
  2. METHOTREXATE [Concomitant]
     Indication: PAIN
  3. TRAMADOL [Concomitant]
     Indication: PAIN
  4. AMITRIPTYLINE [Concomitant]
     Indication: PAIN

REACTIONS (5)
  - Pertussis [Unknown]
  - Headache [Unknown]
  - Nausea [Unknown]
  - Pruritus generalised [Unknown]
  - Oropharyngeal pain [Unknown]
